FAERS Safety Report 6336493-2 (Version None)
Quarter: 2009Q3

REPORT INFORMATION
  Report Type: 
  Country: None (occurrence: None)
  Receive Date: 20090901
  Receipt Date: 20090827
  Transmission Date: 20100115
  Serious: Yes (Other)
  Sender: FDA-Public Use
  Company Number: B0590900A

PATIENT
  Age: 59 Year
  Sex: Female

DRUGS (1)
  1. AMOXICILLIN AND CLAVULANATE POTASSIUM [Suspect]
     Indication: SKIN INFECTION
     Dosage: 625MG TWICE PER DAY
     Route: 065
     Dates: start: 20090801, end: 20090801

REACTIONS (3)
  - ANGIOEDEMA [None]
  - DERMATITIS ALLERGIC [None]
  - URTICARIA [None]
